FAERS Safety Report 9095375 (Version 1)
Quarter: 2013Q1

REPORT INFORMATION
  Report Type: Spontaneous
  Country: US (occurrence: US)
  Receive Date: 20130201
  Receipt Date: 20130201
  Transmission Date: 20140127
  Serious: No
  Sender: FDA-Public Use
  Company Number: US-PFIZER INC-2013040935

PATIENT
  Sex: Female

DRUGS (1)
  1. PRISTIQ [Suspect]
     Indication: GENERALISED ANXIETY DISORDER
     Dosage: UNK
     Dates: end: 201209

REACTIONS (4)
  - Feeling of relaxation [Unknown]
  - Decreased activity [Unknown]
  - Anxiety [Unknown]
  - Poor quality sleep [Unknown]
